FAERS Safety Report 12328511 (Version 1)
Quarter: 2016Q2

REPORT INFORMATION
  Report Type: Spontaneous
  Country: US (occurrence: US)
  Receive Date: 20160503
  Receipt Date: 20160503
  Transmission Date: 20160815
  Serious: No
  Sender: FDA-Public Use
  Company Number: US-BEH-2015048819

PATIENT
  Sex: Male
  Weight: 14 kg

DRUGS (15)
  1. ONDANSETRON [Concomitant]
     Active Substance: ONDANSETRON
  2. FLINTSTONES CHEWABLE MULTIVITAMIN [Concomitant]
  3. POLYMYXIN B SULFATE. [Concomitant]
     Active Substance: POLYMYXIN B SULFATE
  4. TAMIFLU [Concomitant]
     Active Substance: OSELTAMIVIR PHOSPHATE
  5. CEFDINIR. [Concomitant]
     Active Substance: CEFDINIR
  6. ACETAMINOPHEN. [Concomitant]
     Active Substance: ACETAMINOPHEN
  7. DIPHENHYDRAMINE. [Concomitant]
     Active Substance: DIPHENHYDRAMINE
  8. NAPROXEN. [Concomitant]
     Active Substance: NAPROXEN
  9. CHILDRENS ZYRTEC [Concomitant]
     Active Substance: CETIRIZINE HYDROCHLORIDE
  10. HIZENTRA [Suspect]
     Active Substance: HUMAN IMMUNOGLOBULIN G
     Indication: HUMORAL IMMUNE DEFECT
     Route: 058
     Dates: start: 20141028
  11. PREDNISOLONE. [Concomitant]
     Active Substance: PREDNISOLONE
  12. LIDOCAINE. [Concomitant]
     Active Substance: LIDOCAINE
  13. FLOVENT [Concomitant]
     Active Substance: FLUTICASONE PROPIONATE
  14. EPIPEN JR [Concomitant]
     Active Substance: EPINEPHRINE
  15. NASONEX [Concomitant]
     Active Substance: MOMETASONE FUROATE

REACTIONS (2)
  - Infusion site swelling [Unknown]
  - Administration site reaction [Unknown]
